FAERS Safety Report 24734536 (Version 1)
Quarter: 2024Q4

REPORT INFORMATION
  Report Type: Spontaneous
  Country: GB (occurrence: GB)
  Receive Date: 20241214
  Receipt Date: 20241214
  Transmission Date: 20250115
  Serious: Yes (Other)
  Sender: DR REDDYS
  Company Number: None

PATIENT
  Age: 74 Year
  Sex: Male
  Weight: 80 kg

DRUGS (17)
  1. FINASTERIDE [Suspect]
     Active Substance: FINASTERIDE
     Indication: Ill-defined disorder
     Dosage: 5MG TABLETS
     Dates: start: 20241111, end: 20241125
  2. DULOXETINE [Concomitant]
     Active Substance: DULOXETINE
     Indication: Ill-defined disorder
     Dosage: TAKE ONE DAILY/TPP YC - PLEASE RECLASSIFY
     Dates: start: 20240111
  3. CHOLECALCIFEROL [Concomitant]
     Active Substance: CHOLECALCIFEROL
     Indication: Ill-defined disorder
     Dosage: TAKE ONE DAILY/TPP YC - PLEASE RECLASSIFY
     Dates: start: 20240111
  4. HYLO-TEAR [Concomitant]
     Indication: Ill-defined disorder
     Dosage: USE AS DIRECTED/TPP YC - PLEASE RECLASSIFY
     Dates: start: 20240111
  5. LAMOTRIGINE [Concomitant]
     Active Substance: LAMOTRIGINE
     Indication: Ill-defined disorder
     Dosage: TAKE ONE TABLET TWICE DAILY/TPP YC - PLEASE RECLASSIFY
     Dates: start: 20240111
  6. LEVOTHYROXINE [Concomitant]
     Active Substance: LEVOTHYROXINE
     Indication: Ill-defined disorder
     Dosage: TAKE ONE EACH MORNING/TPP YC - PLEASE RECLASSIFY
     Dates: start: 20240111
  7. LITHIUM [Concomitant]
     Active Substance: LITHIUM
     Indication: Ill-defined disorder
     Dosage: TAKE ONE DAILY/TPP YC - PLEASE RECLASSIFY
     Dates: start: 20240111, end: 20241202
  8. LOSARTAN [Concomitant]
     Active Substance: LOSARTAN
     Indication: Ill-defined disorder
     Dosage: TAKE ONE DAILY FOR BLOOD PRESSURE/TPP YC - PLEASE RECLASSIFY
     Dates: start: 20240111, end: 20241129
  9. LOSARTAN [Concomitant]
     Active Substance: LOSARTAN
     Indication: Blood pressure measurement
  10. OLANZAPINE [Concomitant]
     Active Substance: OLANZAPINE
     Indication: Ill-defined disorder
     Dosage: TAKE ONE AT NIGHT/TPP YC - PLEASE RECLASSIFY
     Dates: start: 20240111
  11. ACETAMINOPHEN [Concomitant]
     Active Substance: ACETAMINOPHEN
     Indication: Ill-defined disorder
     Dosage: TAKE ONE OR TWO TABLETS UP TO FOUR TIMES A DAY,.../TPP YC - PLEASE RECLASSIFY
     Dates: start: 20240111
  12. PREGABALIN [Concomitant]
     Active Substance: PREGABALIN
     Indication: Ill-defined disorder
     Dosage: TAKE ONE TWICE DAILY/TPP YC - PLEASE RECLASSIFY
     Dates: start: 20240111
  13. PROPRANOLOL [Concomitant]
     Active Substance: PROPRANOLOL HYDROCHLORIDE
     Indication: Ill-defined disorder
     Dosage: TAKE TWO TO BE TAKEN TWICE DAILY FOR ANXIETY/TPP YC - PLEASE RECLASSIFY
     Dates: start: 20240111, end: 20241129
  14. FERROUS FUMARATE [Concomitant]
     Active Substance: FERROUS FUMARATE
     Indication: Ill-defined disorder
     Dosage: TAKE ONE TABLET TWICE A DAY/TPP YC - PLEASE RECLASSIFY
     Dates: start: 20240117
  15. DOXAZOSIN [Concomitant]
     Active Substance: DOXAZOSIN\DOXAZOSIN MESYLATE
     Indication: Ill-defined disorder
     Dosage: TAKE ONE DAILY/TPP YC - PLEASE RECLASSIFY
     Dates: start: 20240206
  16. SIMVASTATIN [Concomitant]
     Active Substance: SIMVASTATIN
     Indication: Ill-defined disorder
     Dosage: TAKE ONE AT NIGHT/TPP YC - PLEASE RECLASSIFY
     Dates: start: 20240206
  17. LITHIUM [Concomitant]
     Active Substance: LITHIUM
     Indication: Ill-defined disorder
     Dosage: TAKE ONE AT 10PM/TPP YC - PLEASE RECLASSIFY
     Dates: start: 20241202

REACTIONS (1)
  - Toxicity to various agents [Recovering/Resolving]

NARRATIVE: CASE EVENT DATE: 20241125
